FAERS Safety Report 4677207-1 (Version None)
Quarter: 2005Q2

REPORT INFORMATION
  Report Type: 
  Country: None (occurrence: None)
  Receive Date: 20050531
  Receipt Date: 20040526
  Transmission Date: 20051028
  Serious: Yes (Hospitalization)
  Sender: FDA-Public Use
  Company Number: JP-SOLVAY-00304001505

PATIENT
  Age: 22609 Day
  Sex: Female
  Weight: 55 kg

DRUGS (11)
  1. FERO-GRADUMET [Concomitant]
     Indication: ANAEMIA
     Dosage: DAILY DOSE: 1 DF. FREQUENCY:UNKNOWN
     Route: 048
     Dates: start: 19971204, end: 19980219
  2. CREON [Suspect]
     Indication: PANCREATIC INSUFFICIENCY
     Dosage: DAILY DOSE: 3 G. FREQUENCY:UNKNOWN
     Route: 048
     Dates: start: 19970213, end: 19980220
  3. CREON [Suspect]
     Dosage: DAILY DOSE: 3 G. FREQUENCY:UNKNOWN
     Route: 048
     Dates: start: 19980410, end: 19980424
  4. GASTER [Concomitant]
     Indication: ANAEMIA
     Dosage: DAILY DOSE: 2 DF. FREQUENCY:UNKNOWN
     Route: 048
     Dates: start: 19970314, end: 19970702
  5. SLOW FE [Concomitant]
     Indication: ANAEMIA
     Dosage: DAILY DOSE: 2 DF. FREQUENCY:UNKNOWN
     Route: 048
     Dates: start: 19970415, end: 19970617
  6. KETOPROFEN [Concomitant]
     Indication: ANALGESIC EFFECT
     Dosage: DAILY DOSE: UNK. FREQUENCY:UNKNOWN
     Route: 061
     Dates: start: 19980110, end: 19980303
  7. FLUCAM [Concomitant]
     Indication: ANALGESIC EFFECT
     Dosage: DAILY DOSE: 1 DF. FREQUENCY:UNKNOWN
     Route: 048
     Dates: start: 19980310, end: 19980324
  8. RHYTHMY [Concomitant]
     Indication: INSOMNIA
     Dosage: DAILY DOSE: 1 DF. FREQUENCY:UNKNOWN
     Route: 048
     Dates: start: 19980310, end: 19980324
  9. BIOLACTIS [Concomitant]
     Indication: INTESTINAL FUNCTIONAL DISORDER
     Dosage: DAILY DOSE: 3 G. FREQUENCY:UNKNOWN
     Route: 048
     Dates: start: 19970620, end: 19980219
  10. MYONAL [Concomitant]
     Indication: MYALGIA
     Dosage: DAILY DOSE: 3 DF. FREQUENCY:UNKNOWN
     Route: 048
     Dates: start: 19970724, end: 19980219
  11. VITAMEDIN [Concomitant]
     Indication: HYPOVITAMINOSIS
     Dosage: DAILY DOSE: 3 DF. FREQUENCY:UNKNOWN
     Route: 048
     Dates: start: 19970925, end: 19980219

REACTIONS (7)
  - ANOREXIA [None]
  - DIARRHOEA [None]
  - INFLUENZA [None]
  - MALNUTRITION [None]
  - OEDEMA [None]
  - UPPER LIMB FRACTURE [None]
  - VOMITING [None]
